FAERS Safety Report 5178142-5 (Version None)
Quarter: 2006Q4

REPORT INFORMATION
  Report Type: 
  Country: None (occurrence: None)
  Receive Date: 20061218
  Receipt Date: 20060808
  Transmission Date: 20070319
  Serious: No
  Sender: FDA-Public Use
  Company Number: US-AMGEN-KDL189309

PATIENT
  Sex: Female

DRUGS (2)
  1. ENBREL [Suspect]
     Indication: PSORIATIC ARTHROPATHY
     Route: 058
     Dates: start: 20060727
  2. ENBREL [Suspect]
     Indication: PSORIASIS

REACTIONS (8)
  - ARTHRALGIA [None]
  - BACK PAIN [None]
  - INJECTION SITE PAIN [None]
  - INJECTION SITE REACTION [None]
  - JOINT STIFFNESS [None]
  - MUSCULOSKELETAL PAIN [None]
  - MUSCULOSKELETAL STIFFNESS [None]
  - NECK PAIN [None]
